FAERS Safety Report 20422899 (Version 1)
Quarter: 2022Q1

REPORT INFORMATION
  Report Type: Spontaneous
  Country: HR (occurrence: HR)
  Receive Date: 20220203
  Receipt Date: 20220203
  Transmission Date: 20220423
  Serious: Yes (Other)
  Sender: FDA-Public Use
  Company Number: None

PATIENT
  Sex: Female

DRUGS (1)
  1. MEDROL [Suspect]
     Active Substance: METHYLPREDNISOLONE
     Indication: Giant cell arteritis
     Dosage: 4 MG, 1X/DAY
     Route: 048
     Dates: start: 20200717

REACTIONS (21)
  - Exophthalmos [Unknown]
  - Psychiatric symptom [Unknown]
  - Depression [Unknown]
  - Euphoric mood [Unknown]
  - Confusional state [Unknown]
  - Behaviour disorder [Unknown]
  - Insomnia [Unknown]
  - White blood cell count decreased [Unknown]
  - Alopecia [Unknown]
  - Diarrhoea [Unknown]
  - Skin discolouration [Unknown]
  - Cushingoid [Unknown]
  - Pain of skin [Unknown]
  - Blood cholesterol increased [Unknown]
  - Abdominal pain upper [Unknown]
  - Hypertrichosis [Unknown]
  - Back pain [Unknown]
  - Rash [Unknown]
  - Irritability [Unknown]
  - Skin atrophy [Unknown]
  - Arthralgia [Unknown]

NARRATIVE: CASE EVENT DATE: 20200717
